FAERS Safety Report 6670733-5 (Version None)
Quarter: 2010Q2

REPORT INFORMATION
  Report Type: 
  Country: None (occurrence: None)
  Receive Date: 20100405
  Receipt Date: 20100322
  Transmission Date: 20101027
  Serious: Yes (Other)
  Sender: FDA-Public Use
  Company Number: 009305

PATIENT
  Age: 61 Year
  Sex: Male

DRUGS (1)
  1. LEVETIRACETAM [Suspect]
     Indication: CONVULSION

REACTIONS (1)
  - MYASTHENIA GRAVIS [None]
